FAERS Safety Report 4587403-X (Version None)
Quarter: 2005Q1

REPORT INFORMATION
  Report Type: 
  Country: None (occurrence: None)
  Receive Date: 20050218
  Receipt Date: 20050209
  Transmission Date: 20050727
  Serious: Yes (Hospitalization, Disabling, Other)
  Sender: FDA-Public Use
  Company Number: US-JNJFOC-20040402216

PATIENT
  Sex: Female
  Weight: 83.46 kg

DRUGS (10)
  1. REMICADE [Suspect]
     Route: 042
  2. REMICADE [Suspect]
     Route: 042
  3. REMICADE [Suspect]
     Indication: CROHN'S DISEASE
     Route: 042
  4. SULFASALAZINE [Suspect]
     Indication: DRUG USE FOR UNKNOWN INDICATION
  5. PREDNISONE [Suspect]
     Indication: DRUG USE FOR UNKNOWN INDICATION
  6. 5-ASA [Concomitant]
     Dates: start: 20000101
  7. STEROIDS [Concomitant]
  8. ASPIRIN [Concomitant]
     Dates: start: 20000101
  9. POTASSIUM CHLORIDE [Concomitant]
  10. LASIX [Concomitant]

REACTIONS (21)
  - ADRENAL INSUFFICIENCY [None]
  - ANAEMIA [None]
  - ARTHRALGIA [None]
  - CROHN'S DISEASE [None]
  - CYSTITIS [None]
  - DERMATITIS [None]
  - DRUG HYPERSENSITIVITY [None]
  - ECCHYMOSIS [None]
  - HYPOKALAEMIA [None]
  - HYPOMAGNESAEMIA [None]
  - HYPOPROTEINAEMIA [None]
  - MALNUTRITION [None]
  - METABOLIC ACIDOSIS [None]
  - PLEURAL EFFUSION [None]
  - PRURITUS [None]
  - RENAL FAILURE [None]
  - SHOCK [None]
  - SMALL INTESTINAL OBSTRUCTION [None]
  - THYROID DISORDER [None]
  - URINARY TRACT INFECTION [None]
  - URTICARIA [None]
